FAERS Safety Report 16829976 (Version 1)
Quarter: 2019Q3

REPORT INFORMATION
  Report Type: Report from Study
  Country: US (occurrence: US)
  Receive Date: 20190919
  Receipt Date: 20190919
  Transmission Date: 20191005
  Serious: No
  Sender: FDA-Public Use
  Company Number: US-INCYTE CORPORATION-2019IN008265

PATIENT

DRUGS (2)
  1. JAKAFI [Suspect]
     Active Substance: RUXOLITINIB
     Indication: MYELOFIBROSIS
     Dosage: UNK
     Route: 065
  2. JAKAFI [Suspect]
     Active Substance: RUXOLITINIB
     Dosage: UNK
     Route: 065

REACTIONS (8)
  - Mobility decreased [Unknown]
  - Abdominal distension [Unknown]
  - Muscle discomfort [Unknown]
  - Mood swings [Unknown]
  - Hallucination [Recovered/Resolved]
  - Weight increased [Unknown]
  - Musculoskeletal discomfort [Unknown]
  - Dizziness [Unknown]
